FAERS Safety Report 14929174 (Version 1)
Quarter: 2018Q2

REPORT INFORMATION
  Report Type: Not Available
  Country: None (occurrence: ES)
  Receive Date: 20180523
  Receipt Date: 20180523
  Transmission Date: 20180711
  Serious: Yes (Hospitalization)
  Sender: FDA-Public Use
  Company Number: ES-GALEN LIMITED-AE-2018-0654

PATIENT
  Age: 3 Year
  Sex: Female

DRUGS (8)
  1. VINCRISTINE SULFATE. [Suspect]
     Active Substance: VINCRISTINE SULFATE
     Indication: ACUTE LYMPHOCYTIC LEUKAEMIA
     Route: 042
     Dates: start: 20170828, end: 20170828
  2. FLUCONAZOLE. [Concomitant]
     Active Substance: FLUCONAZOLE
     Indication: OPPORTUNISTIC INFECTION PROPHYLAXIS
     Route: 048
     Dates: start: 20170808
  3. SEPTRIN PEDIATRICO 8 MG/40 MG/ML SUSPENSION ORAL , 1 FRASCO DE 100 ML [Concomitant]
     Active Substance: SULFAMETHOXAZOLE\TRIMETHOPRIM
     Indication: OPPORTUNISTIC INFECTION PROPHYLAXIS
     Route: 048
     Dates: start: 20170807
  4. AMPHOTERICIN B. [Concomitant]
     Active Substance: AMPHOTERICIN B
     Indication: OPPORTUNISTIC INFECTION PROPHYLAXIS
     Route: 055
     Dates: start: 20170808
  5. ONCASPAR [Suspect]
     Active Substance: PEGASPARGASE
     Indication: ACUTE LYMPHOCYTIC LEUKAEMIA
     Route: 042
     Dates: start: 20170901, end: 20170901
  6. DAUNORUBICIN HYDROCHLORIDE. [Suspect]
     Active Substance: DAUNORUBICIN HYDROCHLORIDE
     Indication: ACUTE LYMPHOCYTIC LEUKAEMIA
     Route: 042
     Dates: start: 20170828, end: 20170828
  7. METHYLPREDNISOLONE. [Suspect]
     Active Substance: METHYLPREDNISOLONE
     Indication: ACUTE LYMPHOCYTIC LEUKAEMIA
     Route: 042
     Dates: start: 20170807, end: 20170904
  8. ZOVIRAX  400 MG/5 ML SUSPENSION ORAL , 1 FRASCO DE 200 ML [Concomitant]
     Indication: OPPORTUNISTIC INFECTION PROPHYLAXIS
     Route: 048
     Dates: start: 20170807

REACTIONS (3)
  - Gallbladder fibrosis [Recovered/Resolved]
  - Neuralgia [Recovered/Resolved]
  - Febrile neutropenia [Recovered/Resolved]

NARRATIVE: CASE EVENT DATE: 20170904
